FAERS Safety Report 8163496-8 (Version None)
Quarter: 2012Q1

REPORT INFORMATION
  Report Type: 
  Country: None (occurrence: None)
  Receive Date: 20120224
  Receipt Date: 20120213
  Transmission Date: 20120608
  Serious: Yes (Hospitalization)
  Sender: FDA-Public Use
  Company Number: JP-MERCK-1201USA03118

PATIENT
  Age: 76 Year
  Sex: Female

DRUGS (3)
  1. JANUVIA [Suspect]
     Indication: DIABETES MELLITUS
     Route: 048
     Dates: start: 20111006, end: 20120119
  2. BROCIN [Concomitant]
     Indication: BRONCHITIS CHRONIC
     Dosage: DOSAGE IS UNCERTAIN DURING A DAY
     Route: 048
     Dates: start: 20060101
  3. GLIMICRON [Concomitant]
     Route: 048

REACTIONS (1)
  - INTERSTITIAL LUNG DISEASE [None]
